FAERS Safety Report 5604814-1 (Version None)
Quarter: 2008Q1

REPORT INFORMATION
  Report Type: 
  Country: None (occurrence: None)
  Receive Date: 20080123
  Receipt Date: 20080117
  Transmission Date: 20080703
  Serious: Yes (Other)
  Sender: FDA-Public Use
  Company Number: CIP07001718

PATIENT
  Sex: Female
  Weight: 67.1 kg

DRUGS (2)
  1. ACTONEL [Suspect]
     Indication: OSTEOPENIA
     Dosage: 35 MG ONCE WEEKLY, ORAL
     Route: 048
     Dates: start: 20050901, end: 20070301
  2. VITAMINS [Concomitant]

REACTIONS (5)
  - FAILURE OF IMPLANT [None]
  - GINGIVAL INFECTION [None]
  - GINGIVAL PAIN [None]
  - LOOSE TOOTH [None]
  - RESORPTION BONE INCREASED [None]
